FAERS Safety Report 7754274-X (Version None)
Quarter: 2011Q3

REPORT INFORMATION
  Report Type: 
  Country: None (occurrence: None)
  Receive Date: 20110915
  Receipt Date: 20110907
  Transmission Date: 20111222
  Serious: Yes (Hospitalization)
  Sender: FDA-Public Use
  Company Number: US-ELI_LILLY_AND_COMPANY-US201109003324

PATIENT
  Age: 88 Year
  Sex: Female

DRUGS (8)
  1. COUMADIN [Concomitant]
  2. HUMULIN 70/30 [Suspect]
     Indication: DIABETES MELLITUS
     Dosage: UNK
  3. HUMALOG [Suspect]
     Indication: DIABETES MELLITUS
     Dosage: UNK, PRN
  4. TRICOR [Concomitant]
  5. HUMULIN R [Suspect]
     Dosage: UNK, PRN
  6. ZOCOR [Concomitant]
  7. LISINOPRIL [Concomitant]
  8. HUMULIN R [Suspect]
     Indication: DIABETES MELLITUS
     Dosage: UNK, PRN

REACTIONS (9)
  - MUSCULOSKELETAL DISORDER [None]
  - SURGERY [None]
  - ABDOMINAL PAIN [None]
  - DRUG EFFECT DELAYED [None]
  - CARDIAC OPERATION [None]
  - BILE DUCT STONE [None]
  - BLOOD GLUCOSE INCREASED [None]
  - CONFUSIONAL STATE [None]
  - INCORRECT DOSE ADMINISTERED [None]
